FAERS Safety Report 4479991-9 (Version None)
Quarter: 2004Q3

REPORT INFORMATION
  Report Type: 
  Country: None (occurrence: None)
  Receive Date: 20040930
  Receipt Date: 20040804
  Transmission Date: 20050211
  Serious: No
  Sender: FDA-Public Use
  Company Number: 200410243BBE

PATIENT
  Age: 17 Year
  Sex: Male

DRUGS (1)
  1. GAMUNEX [Suspect]
     Dosage: INTRAVENOUS
     Route: 042

REACTIONS (1)
  - HAEMATOCRIT DECREASED [None]
